FAERS Safety Report 5324342-0 (Version None)
Quarter: 2007Q2

REPORT INFORMATION
  Report Type: 
  Country: None (occurrence: None)
  Receive Date: 20070509
  Receipt Date: 20070426
  Transmission Date: 20071010
  Serious: Yes (Hospitalization)
  Sender: FDA-Public Use
  Company Number: 155409ISR

PATIENT
  Age: 62 Year
  Sex: Female

DRUGS (1)
  1. COPAXONE [Suspect]
     Indication: MULTIPLE SCLEROSIS
     Dosage: 20 MG (20 MG, 1 IN1 D); SUBCUTANEOUS
     Route: 058
     Dates: start: 20070403

REACTIONS (4)
  - C-REACTIVE PROTEIN INCREASED [None]
  - INFLAMMATION [None]
  - INJECTION SITE ERYTHEMA [None]
  - RED BLOOD CELL SEDIMENTATION RATE INCREASED [None]
